FAERS Safety Report 15111660 (Version 1)
Quarter: 2018Q3

REPORT INFORMATION
  Report Type: Spontaneous
  Country: JP (occurrence: JP)
  Receive Date: 20180705
  Receipt Date: 20180705
  Transmission Date: 20181010
  Serious: Yes (Death, Hospitalization)
  Sender: FDA-Public Use
  Company Number: JP-UPSHER-SMITH LABORATORIES, LLC-2018USL00287

PATIENT
  Age: 8 Decade
  Sex: Female

DRUGS (12)
  1. OXYBUTYNIN CHLORIDE. [Suspect]
     Active Substance: OXYBUTYNIN CHLORIDE
     Indication: HYPERTONIC BLADDER
     Route: 048
  2. CANDESARTAN CILEXETIL. [Concomitant]
     Active Substance: CANDESARTAN CILEXETIL
     Route: 048
  3. ZANTAC [Concomitant]
     Active Substance: RANITIDINE HYDROCHLORIDE
  4. ARTIST [Concomitant]
     Active Substance: CARVEDILOL
     Route: 048
  5. BETANIS [Suspect]
     Active Substance: MIRABEGRON
     Route: 048
  6. PLETAAL [Concomitant]
     Active Substance: CILOSTAZOL
     Route: 048
  7. ACETANOL [Concomitant]
     Route: 048
  8. DOGMATYL [Concomitant]
     Active Substance: SULPIRIDE
  9. STAYBLA [Suspect]
     Active Substance: IMIDAFENACIN
     Route: 048
  10. AMLODIPINE BESILATE [Concomitant]
     Active Substance: AMLODIPINE BESYLATE
     Route: 048
  11. ROSUVASTATIN CALCIUM. [Concomitant]
     Active Substance: ROSUVASTATIN CALCIUM
     Route: 048
  12. DEPAS [Concomitant]
     Active Substance: ETIZOLAM
     Route: 048

REACTIONS (4)
  - Pneumonia aspiration [Fatal]
  - Infection [Fatal]
  - Pseudomembranous colitis [Unknown]
  - Megacolon [Unknown]

NARRATIVE: CASE EVENT DATE: 2018
